FAERS Safety Report 5322053-9 (Version None)
Quarter: 2007Q2

REPORT INFORMATION
  Report Type: 
  Country: None (occurrence: None)
  Receive Date: 20070507
  Receipt Date: 20070427
  Transmission Date: 20071010
  Serious: Yes (Hospitalization)
  Sender: FDA-Public Use
  Company Number: 2007-157909-NL

PATIENT
  Age: 73 Year
  Sex: Female

DRUGS (2)
  1. MIRTAZAPINE [Suspect]
     Indication: DEPRESSION
     Dosage: 1 DF QD
     Route: 048
     Dates: start: 20070221, end: 20070221
  2. MORPHINE SULFATE [Concomitant]

REACTIONS (4)
  - AGGRESSION [None]
  - DISORIENTATION [None]
  - PARANOIA [None]
  - RESTLESSNESS [None]
